FAERS Safety Report 10237201 (Version 1)
Quarter: 2014Q1

REPORT INFORMATION
  Report Type: Spontaneous
  Country: US (occurrence: None)
  Receive Date: 20140306
  Receipt Date: 20140306
  Transmission Date: 20141002
  Serious: Yes (Hospitalization)
  Sender: FDA-Public Use
  Company Number: 163-21880-13050285

PATIENT
  Age: 66 Year
  Sex: Female

DRUGS (11)
  1. REVLIMID (LENALIDOMIDE) (25 MILLIGRAM, CAPSULES) [Suspect]
     Indication: PLASMA CELL MYELOMA
     Dosage: 25 MG, 1 IN 1 D, PO
     Route: 048
     Dates: start: 201201
  2. ZOMETA (ZOLEDRONIC ACID) (INJECTION) [Concomitant]
  3. TYLENOL CODEINE 3 (PANADEINE CO) (TABLETS) [Concomitant]
  4. DRISDOL (ERGOCALCIFEROL) (CAPSULES) [Concomitant]
  5. MOBIC (MELOXICAM) (TABLETS) [Concomitant]
  6. PROZAC (FLUOXETINE HYDROCHLORIDE) (CAPSULES) [Concomitant]
  7. NORVASC (AMLODIIPINE BESILATE) (TABLETS) [Concomitant]
  8. LISINOPRIL (LISINOPRIL) (TABLETS) [Concomitant]
  9. PRAVACHOL (PRAVASTATIN SODIUM) (TABLETS) [Concomitant]
  10. CITRACAL PLUS D (CITRACAL + D) (TABLETS) [Concomitant]
  11. FLONASE (FLUTICASONE PROPIONATE) (SPRAY (NOT INHALATION) [Concomitant]

REACTIONS (1)
  - Pancreatitis [None]
